FAERS Safety Report 6342965-7 (Version None)
Quarter: 2009Q3

REPORT INFORMATION
  Report Type: 
  Country: None (occurrence: None)
  Receive Date: 20090908
  Receipt Date: 20070521
  Transmission Date: 20100115
  Serious: Yes (Hospitalization, Disabling)
  Sender: FDA-Public Use
  Company Number: US-ASTRAZENECA-2006UW08340

PATIENT
  Sex: Female

DRUGS (7)
  1. SEROQUEL [Suspect]
     Indication: ANXIETY
     Route: 048
     Dates: start: 20020101, end: 20050101
  2. SEROQUEL [Suspect]
     Indication: DEPRESSION
     Route: 048
     Dates: start: 20020101, end: 20050101
  3. SEROQUEL [Suspect]
     Dosage: 25-150 MG
     Route: 048
     Dates: start: 20030512
  4. SEROQUEL [Suspect]
     Dosage: 25-150 MG
     Route: 048
     Dates: start: 20030512
  5. ZYPREXA [Concomitant]
     Dosage: 12.5-40 MG
     Route: 048
     Dates: start: 20030609
  6. XANAX [Concomitant]
     Dosage: 1 MG 3-4 TIMES QD
     Dates: start: 19990101
  7. LUVOX [Concomitant]
     Dates: start: 19990101

REACTIONS (2)
  - DIABETES MELLITUS [None]
  - PANCREATITIS [None]
